FAERS Safety Report 11806627 (Version 4)
Quarter: 2016Q1

REPORT INFORMATION
  Report Type: Spontaneous
  Country: US (occurrence: US)
  Receive Date: 20151207
  Receipt Date: 20160304
  Transmission Date: 20160525
  Serious: No
  Sender: FDA-Public Use
  Company Number: US-PFIZER INC-2015406727

PATIENT
  Age: 72 Year
  Sex: Female
  Weight: 86 kg

DRUGS (9)
  1. LYRICA [Suspect]
     Active Substance: PREGABALIN
     Indication: OSTEOARTHRITIS
     Dosage: 100 OR 150, TWO CAPSULES A DAY
  2. CELEBREX [Concomitant]
     Active Substance: CELECOXIB
  3. TOVIAZ [Concomitant]
     Active Substance: FESOTERODINE FUMARATE
     Indication: OSTEOARTHRITIS
     Dosage: 8 MG, 1X/DAY
     Route: 048
  4. TOVIAZ [Concomitant]
     Active Substance: FESOTERODINE FUMARATE
     Indication: FIBROMYALGIA
  5. LYRICA [Suspect]
     Active Substance: PREGABALIN
     Indication: INTERVERTEBRAL DISC DEGENERATION
  6. TOVIAZ [Concomitant]
     Active Substance: FESOTERODINE FUMARATE
     Indication: INTERVERTEBRAL DISC DEGENERATION
  7. SKELAXIN [Concomitant]
     Active Substance: METAXALONE
  8. LYRICA [Suspect]
     Active Substance: PREGABALIN
     Indication: FIBROMYALGIA
     Dosage: 100 OR 150,  THREE CAPSULES A DAY
  9. LYRICA [Suspect]
     Active Substance: PREGABALIN
     Indication: ARTHRITIS

REACTIONS (1)
  - Drug effect incomplete [Unknown]
